FAERS Safety Report 24026603 (Version 1)
Quarter: 2024Q2

REPORT INFORMATION
  Report Type: Spontaneous
  Country: ID (occurrence: ID)
  Receive Date: 20240628
  Receipt Date: 20240628
  Transmission Date: 20240716
  Serious: No
  Sender: FDA-Public Use
  Company Number: ID-ROCHE-3570306

PATIENT
  Age: 51 Year
  Sex: Female

DRUGS (1)
  1. PHESGO [Suspect]
     Active Substance: HYALURONIDASE-ZZXF\PERTUZUMAB\TRASTUZUMAB
     Indication: Invasive ductal breast carcinoma
     Dosage: 1200/600 MG
     Route: 058
     Dates: start: 20240515

REACTIONS (2)
  - Stomatitis [Unknown]
  - Pruritus [Unknown]
